FAERS Safety Report 5492801-6 (Version None)
Quarter: 2007Q4

REPORT INFORMATION
  Report Type: 
  Country: None (occurrence: None)
  Receive Date: 20071023
  Receipt Date: 20071016
  Transmission Date: 20080405
  Serious: Yes (Hospitalization, Other)
  Sender: FDA-Public Use
  Company Number: ES-ELI_LILLY_AND_COMPANY-ES200710004160

PATIENT
  Age: 78 Year
  Sex: Female

DRUGS (6)
  1. OLANZAPINE [Suspect]
     Indication: ACUTE PSYCHOSIS
     Dosage: 2.5 MG, UNK
     Route: 048
     Dates: start: 20070807, end: 20070811
  2. ACTONEL [Concomitant]
     Dosage: 35 MG, WEEKLY (1/W)
     Route: 048
  3. CLAVERSAL [Concomitant]
     Indication: COLITIS
     Dosage: 500 MG, UNK
     Route: 048
  4. ZOCOR [Concomitant]
     Indication: HYPERLIPIDAEMIA
     Dosage: 10 MG, UNK
     Route: 048
  5. TARDYFERON [Concomitant]
     Indication: COLITIS ULCERATIVE
     Route: 048
     Dates: start: 20070806
  6. CYANOCOBALAMIN [Concomitant]
     Indication: VITAMIN B12 DEFICIENCY
     Route: 048
     Dates: start: 20070810, end: 20070813

REACTIONS (2)
  - GRAND MAL CONVULSION [None]
  - UPPER LIMB FRACTURE [None]
